FAERS Safety Report 10136441 (Version 1)
Quarter: 2014Q2

REPORT INFORMATION
  Report Type: Report from Study
  Country: CA (occurrence: CA)
  Receive Date: 20140429
  Receipt Date: 20140429
  Transmission Date: 20141212
  Serious: Yes (Other)
  Sender: FDA-Public Use
  Company Number: CA-JNJFOC-20140417170

PATIENT
  Age: 37 Year
  Sex: Female
  Weight: 64 kg

DRUGS (2)
  1. REMICADE [Suspect]
     Indication: COLITIS ULCERATIVE
     Dosage: EVERY 6 TO 7 WEEKS
     Route: 042
     Dates: start: 20120222
  2. REMICADE [Suspect]
     Indication: COLITIS ULCERATIVE
     Dosage: EVERY 6 TO 7 WEEKS
     Route: 042
     Dates: start: 20140423

REACTIONS (3)
  - Vocal cord thickening [Unknown]
  - Pruritus [Recovered/Resolved]
  - Infusion related reaction [Recovered/Resolved]
